FAERS Safety Report 5485023-6 (Version None)
Quarter: 2007Q4

REPORT INFORMATION
  Report Type: 
  Country: None (occurrence: None)
  Receive Date: 20071015
  Receipt Date: 20071005
  Transmission Date: 20080405
  Serious: Yes (Hospitalization)
  Sender: FDA-Public Use
  Company Number: PHBS2007JP16909

PATIENT
  Age: 24 Year
  Sex: Male

DRUGS (6)
  1. ZONISAMIDE [Suspect]
     Dosage: 160 TO 300 MG/DAY
     Route: 065
  2. ZONISAMIDE [Suspect]
     Dosage: 300 MG/DAY
     Route: 065
  3. RISPERIDONE [Concomitant]
  4. CLONAZEPAM [Concomitant]
     Dosage: 1.6 MG/DAY
     Route: 065
  5. CARBAMAZEPINE [Suspect]
     Indication: PARTIAL SEIZURES
     Dosage: 400 MG/DAY
     Route: 065
  6. CARBAMAZEPINE [Suspect]
     Dosage: 600 MG/DAY
     Route: 065

REACTIONS (19)
  - ABASIA [None]
  - AGGRESSION [None]
  - AGITATION [None]
  - ASPARTATE AMINOTRANSFERASE INCREASED [None]
  - BLOOD CREATINE PHOSPHOKINASE INCREASED [None]
  - CHOREOATHETOSIS [None]
  - DRUG INTERACTION [None]
  - DYSPHAGIA [None]
  - HEART RATE INCREASED [None]
  - HYPERHIDROSIS [None]
  - INCONTINENCE [None]
  - LABILE BLOOD PRESSURE [None]
  - MUSCLE RIGIDITY [None]
  - MUSCLE SPASTICITY [None]
  - NEUROLEPTIC MALIGNANT SYNDROME [None]
  - PYREXIA [None]
  - SALIVARY HYPERSECRETION [None]
  - SOMNOLENCE [None]
  - TORTICOLLIS [None]
